FAERS Safety Report 23674785 (Version 1)
Quarter: 2024Q1

REPORT INFORMATION
  Report Type: Spontaneous
  Country: FR (occurrence: FR)
  Receive Date: 20240326
  Receipt Date: 20240326
  Transmission Date: 20240409
  Serious: Yes (Life-Threatening, Hospitalization)
  Sender: FDA-Public Use
  Company Number: FR-AFSSAPS-CN2024000237

PATIENT
  Age: 70 Year
  Sex: Female
  Weight: 85 kg

DRUGS (3)
  1. PEGASYS [Suspect]
     Active Substance: PEGINTERFERON ALFA-2A
     Indication: Polycythaemia vera
     Dosage: 25 MG LE LUNDI, MERCREDI ET VENDREDI
     Route: 058
     Dates: start: 20230807, end: 20240119
  2. PEGASYS [Suspect]
     Active Substance: PEGINTERFERON ALFA-2A
     Dosage: 25 MG LE LUNDI, MERCREDI ET VENDREDI
     Route: 058
     Dates: start: 20230719, end: 20230806
  3. VERCYTE [Suspect]
     Active Substance: PIPOBROMAN
     Indication: Polycythaemia vera
     Dosage: 25 MG LE LUNDI, MERCREDI ET VENDREDI
     Route: 048
     Dates: start: 20230927, end: 20240119

REACTIONS (2)
  - Pancytopenia [Not Recovered/Not Resolved]
  - Bone marrow failure [Not Recovered/Not Resolved]

NARRATIVE: CASE EVENT DATE: 20240222
